FAERS Safety Report 6899248-6 (Version None)
Quarter: 2010Q3

REPORT INFORMATION
  Report Type: 
  Country: None (occurrence: None)
  Receive Date: 20100802
  Receipt Date: 20080317
  Transmission Date: 20110219
  Serious: No
  Sender: FDA-Public Use
  Company Number: US-PFIZER INC-2007101653

PATIENT
  Sex: Female

DRUGS (2)
  1. LYRICA [Suspect]
  2. KARIVA [Concomitant]

REACTIONS (3)
  - NAUSEA [None]
  - PAROSMIA [None]
  - VOMITING [None]
